FAERS Safety Report 5292100-1 (Version None)
Quarter: 2007Q2

REPORT INFORMATION
  Report Type: 
  Country: None (occurrence: None)
  Receive Date: 20070403
  Receipt Date: 20070322
  Transmission Date: 20071010
  Serious: Yes (Hospitalization)
  Sender: FDA-Public Use
  Company Number: GXKR2007FR02720

PATIENT
  Age: 67 Year
  Sex: Female

DRUGS (3)
  1. GABAPENTIN [Suspect]
     Indication: ANALGESIC EFFECT
     Dosage: 3600 - 7200 MG/DAY
  2. NAPROXEN [Concomitant]
  3. AMITRIPTYLINE HCL [Concomitant]

REACTIONS (7)
  - AGITATION [None]
  - DRUG ABUSER [None]
  - DRUG WITHDRAWAL SYNDROME [None]
  - EXOPHTHALMOS [None]
  - HYPERHIDROSIS [None]
  - PALLOR [None]
  - TREMOR [None]
